FAERS Safety Report 8173148-6 (Version None)
Quarter: 2012Q1

REPORT INFORMATION
  Report Type: 
  Country: None (occurrence: None)
  Receive Date: 20120229
  Receipt Date: 20110314
  Transmission Date: 20120608
  Serious: No
  Sender: FDA-Public Use
  Company Number: US-GLAXOSMITHKLINE-A0918751A

PATIENT
  Age: 47 Year
  Sex: Female

DRUGS (3)
  1. IMITREX [Suspect]
     Indication: PRODUCT USED FOR UNKNOWN INDICATION
     Dosage: 6MG UNKNOWN
     Route: 058
     Dates: start: 20100507
  2. GSK AUTOINJECTOR [Suspect]
     Route: 058
     Dates: start: 20100507
  3. IMITREX [Suspect]
     Dosage: 100MG UNKNOWN
     Route: 048
     Dates: start: 20100507

REACTIONS (1)
  - ROAD TRAFFIC ACCIDENT [None]
